FAERS Safety Report 6761854-7 (Version None)
Quarter: 2010Q2

REPORT INFORMATION
  Report Type: 
  Country: None (occurrence: None)
  Receive Date: 20100609
  Receipt Date: 20100528
  Transmission Date: 20101027
  Serious: Yes (Other)
  Sender: FDA-Public Use
  Company Number: PHHY2010BR35032

PATIENT
  Age: 37 Year
  Sex: Female
  Weight: 60 kg

DRUGS (6)
  1. TRILEPTAL [Suspect]
     Indication: AFFECTIVE DISORDER
     Dosage: 1 DF DAILY
     Route: 048
     Dates: start: 20100506
  2. TRILEPTAL [Suspect]
     Dosage: 1 DF, BID
     Route: 048
  3. TRILEPTAL [Suspect]
     Dosage: 1 DF DAILY
     Route: 048
  4. FLUOXETINE CHLORIDRATE [Concomitant]
     Indication: DEPRESSION
     Dosage: 1 TABLET DAILY
     Route: 048
  5. BROMAZEPAM [Concomitant]
     Indication: ANXIETY
     Dosage: 1 TABLET DAILY
     Route: 048
  6. PANTOGAR [Concomitant]
     Indication: ALOPECIA
     Dosage: 1 DF, BID
     Route: 048

REACTIONS (5)
  - BEDRIDDEN [None]
  - HEADACHE [None]
  - NAUSEA [None]
  - SOMNOLENCE [None]
  - VOMITING [None]
